FAERS Safety Report 10590624 (Version 2)
Quarter: 2014Q4

REPORT INFORMATION
  Report Type: Spontaneous
  Country: DE (occurrence: DE)
  Receive Date: 20141118
  Receipt Date: 20141124
  Transmission Date: 20150529
  Serious: Yes (Congenital Anomaly, Other)
  Sender: FDA-Public Use
  Company Number: DE-PFIZER INC-2014312123

PATIENT
  Age: 1 Day
  Sex: Female
  Weight: 1.79 kg

DRUGS (3)
  1. PANTOPRAZOLE [Suspect]
     Active Substance: PANTOPRAZOLE SODIUM
     Indication: DYSPEPSIA
     Dosage: 20 MG, DAILY, AT WEEK 0-9, 10-13, 26-30
     Route: 064
  2. CITALOPRAM [Suspect]
     Active Substance: CITALOPRAM HYDROBROMIDE
     Indication: ANXIETY DISORDER
     Dosage: 15 MG, DAILY, (0-33 GESTATIONAL WEEKS
     Route: 064
     Dates: start: 20130125, end: 20130913
  3. FEMIBION [Concomitant]
     Active Substance: VITAMINS
     Indication: PROPHYLAXIS OF NEURAL TUBE DEFECT
     Dosage: UNK (3 - 33 GESTATIONAL WEEKS)
     Route: 064

REACTIONS (5)
  - Atrial septal defect [Not Recovered/Not Resolved]
  - Feeding disorder neonatal [Recovered/Resolved]
  - Premature baby [Recovering/Resolving]
  - Maternal exposure during pregnancy [Not Recovered/Not Resolved]
  - Neonatal respiratory distress syndrome [Recovered/Resolved]

NARRATIVE: CASE EVENT DATE: 20130913
